FAERS Safety Report 17025475 (Version 1)
Quarter: 2019Q4

REPORT INFORMATION
  Report Type: Report from Study
  Country: DE (occurrence: DE)
  Receive Date: 20191113
  Receipt Date: 20191113
  Transmission Date: 20200122
  Serious: Yes (Other)
  Sender: FDA-Public Use
  Company Number: PHHY2015DE083100

PATIENT
  Age: 35 Year
  Sex: Female

DRUGS (1)
  1. GILENYA [Suspect]
     Active Substance: FINGOLIMOD HYDROCHLORIDE
     Indication: MULTIPLE SCLEROSIS
     Dosage: QD
     Route: 048
     Dates: start: 20150312

REACTIONS (13)
  - Rash [Unknown]
  - Fatigue [Unknown]
  - Tachycardia [Unknown]
  - Hyperhidrosis [Unknown]
  - Dizziness [Unknown]
  - Renal pain [Unknown]
  - Lymphocyte count decreased [Unknown]
  - Gamma-glutamyltransferase increased [Unknown]
  - Vertigo [Unknown]
  - Depression [Unknown]
  - Restless legs syndrome [Unknown]
  - Alanine aminotransferase increased [Unknown]
  - Subcutaneous haematoma [Recovered/Resolved]

NARRATIVE: CASE EVENT DATE: 20150616
